FAERS Safety Report 8079335-X (Version None)
Quarter: 2012Q1

REPORT INFORMATION
  Report Type: 
  Country: None (occurrence: None)
  Receive Date: 20120128
  Receipt Date: 20110819
  Transmission Date: 20120608
  Serious: No
  Sender: FDA-Public Use
  Company Number: US-ABBOTT-11P-163-0848392-00

PATIENT
  Sex: Male

DRUGS (2)
  1. HUMIRA [Suspect]
     Indication: PSORIATIC ARTHROPATHY
     Route: 058
     Dates: start: 20101101, end: 20110301
  2. HUMIRA [Suspect]
     Route: 058
     Dates: start: 20110401

REACTIONS (7)
  - ERYTHEMA [None]
  - SKIN EXFOLIATION [None]
  - PYREXIA [None]
  - INFLUENZA LIKE ILLNESS [None]
  - BACTERIAL INFECTION [None]
  - PAIN [None]
  - SWELLING FACE [None]
